FAERS Safety Report 5044839-0 (Version None)
Quarter: 2006Q3

REPORT INFORMATION
  Report Type: 
  Country: None (occurrence: None)
  Receive Date: 20060707
  Receipt Date: 20060705
  Transmission Date: 20061208
  Serious: Yes (Death)
  Sender: FDA-Public Use
  Company Number: US-BRISTOL-MYERS SQUIBB COMPANY-13432919

PATIENT
  Age: 49 Year
  Sex: Male
  Weight: 73 kg

DRUGS (7)
  1. COUMADIN [Suspect]
     Indication: MYOCARDIAL INFARCTION
  2. COUMADIN [Suspect]
     Indication: CORONARY ANGIOPLASTY
  3. COUMADIN [Suspect]
     Indication: CORONARY ARTERIAL STENT INSERTION
  4. PLAVIX [Suspect]
  5. NSAID [Concomitant]
  6. PREDNISONE TAB [Concomitant]
  7. ARAVA [Concomitant]

REACTIONS (1)
  - DEATH [None]
